FAERS Safety Report 18038857 (Version 1)
Quarter: 2020Q3

REPORT INFORMATION
  Report Type: Report from Study
  Country: CN (occurrence: CN)
  Receive Date: 20200717
  Receipt Date: 20200717
  Transmission Date: 20201103
  Serious: Yes (Hospitalization, Other)
  Sender: FDA-Public Use
  Company Number: CN-GLAXOSMITHKLINE-CN2020APC126793

PATIENT

DRUGS (1)
  1. LAMOTRIGINE. [Suspect]
     Active Substance: LAMOTRIGINE
     Indication: PRODUCT USED FOR UNKNOWN INDICATION
     Dosage: UNK

REACTIONS (6)
  - Mucosal disorder [Unknown]
  - Dermatitis exfoliative [Unknown]
  - Drug hypersensitivity [Unknown]
  - Drug eruption [Unknown]
  - White blood cell count increased [Unknown]
  - Pyrexia [Unknown]
